FAERS Safety Report 5079195-5 (Version None)
Quarter: 2006Q3

REPORT INFORMATION
  Report Type: 
  Country: None (occurrence: None)
  Receive Date: 20060814
  Receipt Date: 20060808
  Transmission Date: 20061208
  Serious: Yes (Other)
  Sender: FDA-Public Use
  Company Number: AU-AVENTIS-200618258GDDC

PATIENT
  Age: 63 Year
  Sex: Female

DRUGS (7)
  1. ARAVA [Suspect]
     Indication: RHEUMATOID ARTHRITIS
     Route: 048
     Dates: start: 20060325, end: 20060615
  2. HYDROXYCHLOROQUIN [Concomitant]
     Dosage: DOSE: UNK
  3. METHOTREXATE [Concomitant]
     Dosage: DOSE: UNK
  4. PREDNISONE TAB [Concomitant]
     Dosage: DOSE: UNK
  5. FOLIC ACID [Concomitant]
     Dosage: DOSE: UNK
  6. DYMADON [Concomitant]
     Dosage: DOSE: UNK
  7. VENTOLIN [Concomitant]
     Dosage: DOSE: UNK

REACTIONS (2)
  - PLEURISY [None]
  - RASH [None]
